FAERS Safety Report 8969983 (Version 1)
Quarter: 2012Q4

REPORT INFORMATION
  Report Type: 
  Country: US (occurrence: US)
  Receive Date: 20121217
  Receipt Date: 20121217
  Transmission Date: 20130627
  Serious: Yes (Hospitalization)
  Sender: FDA-Public Use
  Company Number: US-ELI_LILLY_AND_COMPANY-US201212002724

PATIENT
  Age: 77 Year
  Sex: Female

DRUGS (5)
  1. CYMBALTA [Suspect]
     Indication: DEPRESSION
     Dosage: 60 mg, qd
  2. CYMBALTA [Suspect]
     Dosage: 60 mg, bid
  3. CYMBALTA [Suspect]
     Dosage: 30 mg, qd
  4. CYMBALTA [Suspect]
     Dosage: 20 mg, qod
  5. AMBIEN [Concomitant]

REACTIONS (11)
  - Spinal laminectomy [Unknown]
  - Depressed mood [Unknown]
  - Hyperhidrosis [Recovered/Resolved]
  - Weight increased [Recovered/Resolved]
  - Haemorrhage subcutaneous [Unknown]
  - Hallucination [Not Recovered/Not Resolved]
  - Genital pain [Unknown]
  - Skin discolouration [Recovered/Resolved]
  - Insomnia [Unknown]
  - Sleep disorder [Unknown]
  - Squamous cell carcinoma [Unknown]
